FAERS Safety Report 7639898-2 (Version None)
Quarter: 2011Q3

REPORT INFORMATION
  Report Type: 
  Country: None (occurrence: None)
  Receive Date: 20110727
  Receipt Date: 20110718
  Transmission Date: 20111222
  Serious: Yes (Other)
  Sender: FDA-Public Use
  Company Number: PHHY2011AE53696

PATIENT
  Sex: Male

DRUGS (1)
  1. GILENYA [Suspect]
     Indication: RELAPSING-REMITTING MULTIPLE SCLEROSIS
     Dosage: 0.5 MG, DAILY
     Route: 048
     Dates: start: 20110519, end: 20110609

REACTIONS (4)
  - VISUAL FIELD DEFECT [None]
  - VISUAL IMPAIRMENT [None]
  - CHORIORETINOPATHY [None]
  - SCOTOMA [None]
